FAERS Safety Report 7686785-X (Version None)
Quarter: 2011Q3

REPORT INFORMATION
  Report Type: 
  Country: None (occurrence: None)
  Receive Date: 20110816
  Receipt Date: 20110805
  Transmission Date: 20111222
  Serious: Yes (Hospitalization, Other)
  Sender: FDA-Public Use
  Company Number: PHHY2011DE72552

PATIENT
  Age: 5 Year
  Sex: Female

DRUGS (3)
  1. ACYCLOVIR [Suspect]
     Dosage: 30 MG/KG BW/D
     Route: 042
  2. METHOTREXATE [Suspect]
     Indication: JUVENILE ARTHRITIS
  3. PREDNISOLONE [Suspect]
     Indication: JUVENILE ARTHRITIS
     Dosage: 60 MG/M2

REACTIONS (2)
  - HERPES ZOSTER [None]
  - RENAL FAILURE [None]
